FAERS Safety Report 23039026 (Version 1)
Quarter: 2023Q4

REPORT INFORMATION
  Report Type: Spontaneous
  Country: DE (occurrence: DE)
  Receive Date: 20231006
  Receipt Date: 20231006
  Transmission Date: 20240110
  Serious: Yes (Death, Other)
  Sender: FDA-Public Use
  Company Number: None

PATIENT
  Age: 66 Year
  Sex: Female

DRUGS (2)
  1. DOCETAXEL [Suspect]
     Active Substance: DOCETAXEL
     Indication: Adenocarcinoma
     Dosage: UNK(75 MG//M2 D1 QW 3)
     Dates: start: 201702, end: 201703
  2. NINTEDANIB ESYLATE [Suspect]
     Active Substance: NINTEDANIB ESYLATE
     Indication: Adenocarcinoma
     Dosage: 400 MG, QD
     Dates: start: 201702, end: 201703

REACTIONS (2)
  - Pulmonary embolism [Fatal]
  - Sepsis [Fatal]
